FAERS Safety Report 7267808-9 (Version None)
Quarter: 2011Q1

REPORT INFORMATION
  Report Type: 
  Country: None (occurrence: None)
  Receive Date: 20110201
  Receipt Date: 20110121
  Transmission Date: 20110831
  Serious: Yes (Hospitalization)
  Sender: FDA-Public Use
  Company Number: B0678489A

PATIENT
  Sex: Female
  Weight: 60 kg

DRUGS (4)
  1. IMOVANE [Concomitant]
     Indication: INSOMNIA
     Route: 065
  2. NSAID [Concomitant]
     Route: 065
     Dates: start: 20100719, end: 20100928
  3. TEMESTA [Concomitant]
     Indication: INSOMNIA
     Route: 065
  4. ARIXTRA [Suspect]
     Indication: THROMBOSIS PROPHYLAXIS
     Dosage: 2.5MG PER DAY
     Route: 058
     Dates: start: 20100706, end: 20100728

REACTIONS (4)
  - CONNECTIVE TISSUE DISORDER [None]
  - DEVICE DISLOCATION [None]
  - HAEMATOMA [None]
  - POSTOPERATIVE THROMBOSIS [None]
